FAERS Safety Report 9880932 (Version 2)
Quarter: 2014Q1

REPORT INFORMATION
  Report Type: Spontaneous
  Country: JP (occurrence: None)
  Receive Date: 20140205
  Receipt Date: 20140307
  Transmission Date: 20141002
  Serious: Yes (Other)
  Sender: FDA-Public Use
  Company Number: ABR_01475_2014

PATIENT
  Sex: Female

DRUGS (1)
  1. GLIADEL [Suspect]
     Indication: MALIGNANT GLIOMA
     Dosage: DF INTRACEREBRAL?
     Route: 044

REACTIONS (3)
  - Pneumocephalus [None]
  - Brain oedema [None]
  - Post procedural complication [None]
